FAERS Safety Report 20534435 (Version 9)
Quarter: 2022Q4

REPORT INFORMATION
  Report Type: Report from Study
  Country: PL (occurrence: None)
  Receive Date: 20220302
  Receipt Date: 20221222
  Transmission Date: 20230112
  Serious: Yes (Hospitalization)
  Sender: FDA-Public Use
  Company Number: PL-ROCHE-3034130

PATIENT
  Age: 54 Year
  Sex: Male
  Weight: 87 kg

DRUGS (6)
  1. TIRAGOLUMAB [Suspect]
     Active Substance: TIRAGOLUMAB
     Indication: Squamous cell carcinoma of lung
     Dosage: DATE OF MOST RECENT DOSE 09-FEB-2022
     Route: 042
     Dates: start: 20220112
  2. ATEZOLIZUMAB [Suspect]
     Active Substance: ATEZOLIZUMAB
     Indication: Squamous cell carcinoma of lung
     Dosage: DATE OF MOST RECENT DOSE 09/FEB/2022
     Route: 041
     Dates: start: 20220112
  3. HEPAREGEN [Concomitant]
     Dates: start: 20211203, end: 20220629
  4. IPP (POLAND) [Concomitant]
     Dates: start: 20211204, end: 20220629
  5. LYRICA [Concomitant]
     Active Substance: PREGABALIN
     Indication: Cancer pain
     Dates: start: 20211204, end: 20220629
  6. ENOXAPARIN SODIUM [Concomitant]
     Active Substance: ENOXAPARIN SODIUM
     Indication: Pulmonary embolism
     Dates: start: 20211231, end: 20220629

REACTIONS (2)
  - Gastrointestinal perforation [Not Recovered/Not Resolved]
  - Hyperthyroidism [Not Recovered/Not Resolved]

NARRATIVE: CASE EVENT DATE: 20220225
